FAERS Safety Report 6526819-9 (Version None)
Quarter: 2010Q1

REPORT INFORMATION
  Report Type: 
  Country: None (occurrence: None)
  Receive Date: 20100104
  Receipt Date: 20100104
  Transmission Date: 20100710
  Serious: Yes (Life-Threatening)
  Sender: FDA-Public Use
  Company Number: None

PATIENT
  Age: 76 Year
  Sex: Female
  Weight: 74.1 kg

DRUGS (2)
  1. ALTEPLASE (ACTIVASE) FOR INTRAVENOUS USE 50 MG GENETECH [Suspect]
     Indication: CEREBROVASCULAR ACCIDENT
     Dosage: 8 MG STAT IVP
     Route: 042
     Dates: start: 20091023
  2. ALTEPLASE (ACTIVASE) FOR INTRAVENOUS USE 50 MG GENETECH [Suspect]
     Indication: CEREBROVASCULAR ACCIDENT
     Dosage: 50 MG INFUSION INFUSION OVER 1 HOUR
     Route: 042
     Dates: start: 20091023

REACTIONS (4)
  - CEREBROVASCULAR ACCIDENT [None]
  - GINGIVAL BLEEDING [None]
  - HAEMORRHAGE INTRACRANIAL [None]
  - PERIORBITAL HAEMATOMA [None]
